FAERS Safety Report 12092476 (Version 5)
Quarter: 2019Q2

REPORT INFORMATION
  Report Type: Spontaneous
  Country: PL (occurrence: PL)
  Receive Date: 20160219
  Receipt Date: 20190530
  Transmission Date: 20190711
  Serious: Yes (Hospitalization, Other)
  Sender: FDA-Public Use
  Company Number: PL-ROCHE-1713283

PATIENT
  Age: 54 Year
  Sex: Male
  Weight: 77 kg

DRUGS (20)
  1. MABTHERA [Suspect]
     Active Substance: RITUXIMAB
     Indication: B-CELL LYMPHOMA
     Dosage: 2 THERAPY CYCLES
     Route: 042
     Dates: start: 20151105, end: 20151202
  2. CISPLATIN. [Concomitant]
     Active Substance: CISPLATIN
     Indication: MANTLE CELL LYMPHOMA
     Route: 042
     Dates: start: 20160128, end: 20160128
  3. CLEMASTIN [Concomitant]
     Active Substance: CLEMASTINE
     Indication: OFF LABEL USE
     Route: 065
  4. ATOSSA [ONDANSETRON] [Concomitant]
     Indication: OFF LABEL USE
     Route: 065
  5. INDIX [Concomitant]
     Active Substance: INDAPAMIDE
     Indication: OFF LABEL USE
     Route: 065
  6. MILURIT [Concomitant]
     Active Substance: ALLOPURINOL
     Indication: OFF LABEL USE
     Route: 065
  7. GAZYVARO [Suspect]
     Active Substance: OBINUTUZUMAB
     Indication: MANTLE CELL LYMPHOMA
     Route: 042
     Dates: start: 20151229, end: 20160126
  8. DEXAMETHASONE. [Concomitant]
     Active Substance: DEXAMETHASONE
     Indication: MANTLE CELL LYMPHOMA
     Route: 042
     Dates: start: 20160128, end: 20160131
  9. DEXAVEN [Concomitant]
     Active Substance: DEXAMETHASONE
     Indication: OFF LABEL USE
     Route: 065
  10. NEBILET [Concomitant]
     Active Substance: NEBIVOLOL
     Indication: OFF LABEL USE
     Route: 065
  11. ROMAZIC [Concomitant]
     Active Substance: ROSUVASTATIN CALCIUM
     Indication: OFF LABEL USE
     Route: 065
  12. DEXAMETHASONE. [Concomitant]
     Active Substance: DEXAMETHASONE
     Indication: OFF LABEL USE
  13. CYTARABINE. [Concomitant]
     Active Substance: CYTARABINE
     Indication: MANTLE CELL LYMPHOMA
     Route: 042
     Dates: start: 20160129, end: 20160130
  14. PARACETAMOL [Concomitant]
     Active Substance: ACETAMINOPHEN
     Indication: OFF LABEL USE
     Route: 065
  15. GLUCOPHAGE [Concomitant]
     Active Substance: METFORMIN HYDROCHLORIDE
     Indication: OFF LABEL USE
     Route: 065
  16. MABTHERA [Suspect]
     Active Substance: RITUXIMAB
     Indication: OFF LABEL USE
  17. CISPLATIN. [Concomitant]
     Active Substance: CISPLATIN
     Indication: OFF LABEL USE
  18. MABTHERA [Suspect]
     Active Substance: RITUXIMAB
     Indication: MANTLE CELL LYMPHOMA
     Dosage: 700 MG IN 500 ML NACL 0.9 %?2 THERAPY CYCLES
     Route: 042
     Dates: start: 20111104
  19. GAZYVARO [Suspect]
     Active Substance: OBINUTUZUMAB
     Indication: OFF LABEL USE
  20. CYTARABINE. [Concomitant]
     Active Substance: CYTARABINE
     Indication: OFF LABEL USE

REACTIONS (5)
  - Off label use [Unknown]
  - Pancytopenia [Unknown]
  - Serum sickness [Recovered/Resolved]
  - Serum sickness [Recovered/Resolved]
  - Renal failure [Unknown]

NARRATIVE: CASE EVENT DATE: 20151118
